FAERS Safety Report 17809054 (Version 3)
Quarter: 2020Q2

REPORT INFORMATION
  Report Type: Spontaneous
  Country: BE (occurrence: BE)
  Receive Date: 20200520
  Receipt Date: 20200619
  Transmission Date: 20200714
  Serious: Yes (Hospitalization, Other)
  Sender: FDA-Public Use
  Company Number: NVSC2020BE137040

PATIENT
  Age: 46 Year
  Sex: Male

DRUGS (9)
  1. ADALIMUMAB [Suspect]
     Active Substance: ADALIMUMAB
     Indication: CROHN^S DISEASE
     Dosage: FOR 3 YEARS
     Route: 058
     Dates: start: 20040727, end: 20070320
  2. MEDROL [Suspect]
     Active Substance: METHYLPREDNISOLONE
     Indication: CROHN^S DISEASE
     Dosage: 8 MG
     Route: 048
     Dates: start: 19950804, end: 20160425
  3. METHOTREXATE. [Concomitant]
     Active Substance: METHOTREXATE
     Indication: ANKYLOSING SPONDYLITIS
     Dosage: 20 MG
     Route: 065
  4. REMICADE [Suspect]
     Active Substance: INFLIXIMAB
     Indication: CROHN^S DISEASE
     Dosage: FOR 4 YEARS, (+/- 8 TIMES IN TOTAL)
     Route: 042
     Dates: start: 20000313, end: 20040115
  5. VEDOLIZUMAB [Suspect]
     Active Substance: VEDOLIZUMAB
     Indication: CROHN^S DISEASE
     Dosage: 300 MG
     Route: 042
     Dates: start: 20100705
  6. ABATACEPT [Suspect]
     Active Substance: ABATACEPT
     Indication: CROHN^S DISEASE
     Dosage: FOR 9 MONTHS
     Route: 065
  7. USTEKINUMAB [Concomitant]
     Active Substance: USTEKINUMAB
     Indication: CROHN^S DISEASE
     Dosage: UNK
     Route: 065
  8. INNOHEP [Concomitant]
     Active Substance: TINZAPARIN SODIUM
     Indication: DEEP VEIN THROMBOSIS
     Dosage: UNK
     Route: 065
  9. DUROGESIC [Concomitant]
     Active Substance: FENTANYL
     Indication: ANKYLOSING SPONDYLITIS
     Dosage: 25 MG
     Route: 065

REACTIONS (2)
  - Abscess [Recovered/Resolved]
  - Osteonecrosis of jaw [Recovered/Resolved]

NARRATIVE: CASE EVENT DATE: 20160304
